FAERS Safety Report 14160799 (Version 1)
Quarter: 2017Q4

REPORT INFORMATION
  Report Type: Report from Study
  Country: US (occurrence: US)
  Receive Date: 20171106
  Receipt Date: 20171106
  Transmission Date: 20180321
  Serious: Yes (Death)
  Sender: FDA-Public Use
  Company Number: US-BAYER-2017-208078

PATIENT
  Age: 72 Year
  Sex: Male

DRUGS (1)
  1. NEXAVAR [Suspect]
     Active Substance: SORAFENIB
     Dosage: DAILY DOSE 600 MG (1 TAB EVERY MORNING AND 2 TABS EVERY EVENING)
     Route: 048
     Dates: start: 20170928

REACTIONS (2)
  - Death [Fatal]
  - Off label use [None]

NARRATIVE: CASE EVENT DATE: 20171025
